FAERS Safety Report 9826208 (Version 1)
Quarter: 2014Q1

REPORT INFORMATION
  Report Type: Report from Study
  Country: US (occurrence: US)
  Receive Date: 20140117
  Receipt Date: 20140117
  Transmission Date: 20141002
  Serious: Yes (Hospitalization)
  Sender: FDA-Public Use
  Company Number: US-009507513-1401USA004475

PATIENT
  Sex: Male

DRUGS (4)
  1. VICTRELIS [Suspect]
     Indication: HEPATITIS C
     Dosage: 12 IN 1 D
     Route: 065
     Dates: start: 20120927
  2. COPEGUS [Suspect]
     Indication: HEPATITIS C
     Dosage: 600 MG, Q12H
     Route: 048
     Dates: start: 20120927
  3. COPEGUS [Suspect]
     Dosage: 3 DF, Q12H
     Route: 048
  4. PEGASYS [Suspect]
     Indication: HEPATITIS C
     Dosage: 1 DF, QW
     Route: 058
     Dates: start: 20120927

REACTIONS (10)
  - Loss of consciousness [Recovered/Resolved]
  - Cerebral ischaemia [Unknown]
  - White blood cell count decreased [Unknown]
  - Fall [Unknown]
  - Concussion [Recovering/Resolving]
  - Rash [Unknown]
  - Heart rate increased [Unknown]
  - Weight increased [Unknown]
  - Asthenia [Unknown]
  - Insomnia [Unknown]
